FAERS Safety Report 19088827 (Version 1)
Quarter: 2021Q2

REPORT INFORMATION
  Report Type: Spontaneous
  Country: US (occurrence: US)
  Receive Date: 20210403
  Receipt Date: 20210403
  Transmission Date: 20210717
  Serious: Yes (Other)
  Sender: FDA-Public Use
  Company Number: US-QUAGEN-2021QUALIT00024

PATIENT
  Age: 20 Year
  Sex: Male

DRUGS (3)
  1. PAROXETINE. [Interacting]
     Active Substance: PAROXETINE
     Indication: SLEEP TERROR
     Route: 065
  2. RANITIDINE. [Concomitant]
     Active Substance: RANITIDINE
     Indication: PRODUCT USED FOR UNKNOWN INDICATION
     Route: 065
  3. CETIRIZINE HYDROCHLORIDE. [Suspect]
     Active Substance: CETIRIZINE HYDROCHLORIDE
     Indication: RHINITIS ALLERGIC
     Route: 065

REACTIONS (2)
  - Sleep terror [Recovered/Resolved]
  - Condition aggravated [Recovered/Resolved]
